FAERS Safety Report 20360117 (Version 1)
Quarter: 2022Q1

REPORT INFORMATION
  Report Type: Spontaneous
  Country: US (occurrence: US)
  Receive Date: 20220121
  Receipt Date: 20220121
  Transmission Date: 20220423
  Serious: Yes (Hospitalization)
  Sender: FDA-Public Use
  Company Number: US-Vifor (International) Inc.-VIT-2022-00404

PATIENT
  Age: 70 Year
  Sex: Male
  Weight: 56.3 kg

DRUGS (1)
  1. MIRCERA [Suspect]
     Active Substance: METHOXY POLYETHYLENE GLYCOL-EPOETIN BETA
     Indication: Nephrogenic anaemia
     Route: 040
     Dates: start: 20220115, end: 20220115

REACTIONS (4)
  - Drug hypersensitivity [Unknown]
  - Pruritus [Not Recovered/Not Resolved]
  - Dyspnoea [Not Recovered/Not Resolved]
  - Blood pressure decreased [Recovering/Resolving]

NARRATIVE: CASE EVENT DATE: 20220115
